FAERS Safety Report 12866450 (Version 1)
Quarter: 2016Q4

REPORT INFORMATION
  Report Type: Spontaneous
  Country: US (occurrence: US)
  Receive Date: 20161020
  Receipt Date: 20161020
  Transmission Date: 20170207
  Serious: No
  Sender: FDA-Public Use
  Company Number: US-SA-2016SA105983

PATIENT
  Age: 27 Year
  Sex: Female

DRUGS (5)
  1. SELENIUM [Concomitant]
     Active Substance: SELENIUM
  2. VITAMIN D [Concomitant]
     Active Substance: CHOLECALCIFEROL
  3. AUBAGIO [Suspect]
     Active Substance: TERIFLUNOMIDE
     Indication: MULTIPLE SCLEROSIS
     Route: 048
  4. BIOTIN [Concomitant]
     Active Substance: BIOTIN
  5. ZINC [Concomitant]
     Active Substance: ZINC\ZINC CHLORIDE

REACTIONS (2)
  - Diarrhoea [Unknown]
  - Alopecia [Unknown]
